FAERS Safety Report 16975846 (Version 7)
Quarter: 2020Q4

REPORT INFORMATION
  Report Type: Report from Study
  Country: GB (occurrence: GB)
  Receive Date: 20191030
  Receipt Date: 20201203
  Transmission Date: 20210113
  Serious: Yes (Life-Threatening, Hospitalization)
  Sender: FDA-Public Use
  Company Number: GB-MYLANLABS-2019M1102874

PATIENT
  Age: 45 Year
  Sex: Female

DRUGS (31)
  1. TRASTUZUMAB. [Suspect]
     Active Substance: TRASTUZUMAB
     Dosage: DATE OF MOST RECENT DOSE ( 600MG ) OF TRASTUZUMAB
     Route: 042
     Dates: start: 20151217, end: 20160308
  2. TRASTUZUMAB. [Suspect]
     Active Substance: TRASTUZUMAB
     Indication: BREAST CANCER METASTATIC
     Dosage: 600 MILLIGRAM, QD (LOADING DOSE)
     Route: 042
     Dates: start: 20151217, end: 20160308
  3. EXEMESTANE. [Suspect]
     Active Substance: EXEMESTANE
     Indication: BREAST CANCER METASTATIC
     Dosage: 25 MILLIGRAM, QD
     Route: 048
     Dates: start: 20150518
  4. PERTUZUMAB. [Suspect]
     Active Substance: PERTUZUMAB
     Dosage: 840 MILLIGRAM, QD (LOADING DOSE)
     Route: 042
     Dates: start: 20160623, end: 20160623
  5. PERTUZUMAB. [Suspect]
     Active Substance: PERTUZUMAB
     Dosage: 420 MILLIGRAM (MAINTENANCE DOSE), 3XW
     Route: 042
     Dates: start: 20150825, end: 20151117
  6. PERTUZUMAB. [Suspect]
     Active Substance: PERTUZUMAB
     Dosage: 840 MILLIGRAM, QD (ONE CYCLE LOADING DOSE)
     Route: 042
     Dates: start: 20150804
  7. PARACETAMOL [Concomitant]
     Active Substance: ACETAMINOPHEN
     Dosage: UNK
  8. PERTUZUMAB. [Suspect]
     Active Substance: PERTUZUMAB
     Dosage: DATE OF MOST RECENT DOSE (420 MG) OF PERTUZUMAB 15/JUL/2016
     Route: 042
     Dates: start: 20150804
  9. DOCETAXEL. [Suspect]
     Active Substance: DOCETAXEL
     Dosage: 120 MILLIGRAM, Q3W
     Route: 042
     Dates: start: 20150814
  10. RAMIPRIL. [Concomitant]
     Active Substance: RAMIPRIL
     Dosage: UNK
  11. TRASTUZUMAB. [Suspect]
     Active Substance: TRASTUZUMAB
     Dosage: 600 MILLIGRAM, Q3W
     Route: 058
     Dates: start: 20160723
  12. TAXOTERE [Suspect]
     Active Substance: DOCETAXEL
     Indication: BREAST CANCER METASTATIC
     Dosage: 120 MILLIGRAM, Q3W
     Route: 042
     Dates: start: 20150814, end: 20151117
  13. DEXAMETHASONE. [Concomitant]
     Active Substance: DEXAMETHASONE
     Dosage: UNK
  14. CO-AMOXICLAV                       /01000301/ [Concomitant]
     Active Substance: AMOXICILLIN\CLAVULANATE POTASSIUM
     Dosage: UNK
  15. IBANDRONIC ACID. [Concomitant]
     Active Substance: IBANDRONIC ACID
     Dosage: UNK
  16. DIFFLAM [Concomitant]
     Active Substance: BENZYDAMINE HYDROCHLORIDE
     Dosage: UNK
  17. TRASTUZUMAB. [Suspect]
     Active Substance: TRASTUZUMAB
     Dosage: DATE OF MOST RECENT DOSE ( 600MG ) OF TRASTUZUMAB:
     Route: 042
     Dates: start: 20151217
  18. EXEMESTANE. [Suspect]
     Active Substance: EXEMESTANE
     Indication: BREAST CANCER METASTATIC
     Dosage: 25 MILLIGRAM, QD
     Route: 048
  19. IBANDRONATE [Suspect]
     Active Substance: IBANDRONATE SODIUM
     Indication: METASTASES TO BONE
     Dosage: 50 MILLIGRAM, QD
     Route: 048
     Dates: start: 20150518
  20. PERTUZUMAB. [Suspect]
     Active Substance: PERTUZUMAB
     Dosage: 420 MILLIGRAM (MAINTENANCE DOSE), 3XW
     Route: 042
     Dates: start: 20151217, end: 20160308
  21. DOCETAXEL. [Suspect]
     Active Substance: DOCETAXEL
     Indication: BREAST CANCER METASTATIC
     Dosage: 120 MILLIGRAM, 3XW
     Route: 042
     Dates: start: 20150804
  22. DENOSUMAB [Concomitant]
     Active Substance: DENOSUMAB
     Dosage: 120 MILLIGRAM, MONTHLY
     Route: 058
     Dates: start: 20160127
  23. GENTAMICIN. [Concomitant]
     Active Substance: GENTAMICIN
     Dosage: UNK
  24. TAZOCIN [Concomitant]
     Active Substance: PIPERACILLIN SODIUM\TAZOBACTAM SODIUM
     Dosage: UNK
  25. BISOPROLOL [Concomitant]
     Active Substance: BISOPROLOL
     Dosage: UNK
  26. MEROPENEM. [Concomitant]
     Active Substance: MEROPENEM
     Dosage: UNK
  27. PERTUZUMAB. [Suspect]
     Active Substance: PERTUZUMAB
     Indication: BREAST CANCER METASTATIC
     Dosage: 420 MILLIGRAM (MAINTENANCE DOSE), QD
     Route: 042
     Dates: start: 20160715
  28. DEXAMETHASONE. [Concomitant]
     Active Substance: DEXAMETHASONE
     Dosage: 8 MILLIGRAM (FOR 3 DAYS EVERY 3 WEEKS)
     Route: 048
     Dates: start: 20150803
  29. CIPROFLOXACIN. [Concomitant]
     Active Substance: CIPROFLOXACIN
     Dosage: UNK
  30. TRASTUZUMAB. [Suspect]
     Active Substance: TRASTUZUMAB
     Dosage: 483 MILLIGRAM, QD (LOADING DOSE)
     Route: 042
     Dates: start: 20150803, end: 20150803
  31. DENOSUMAB [Concomitant]
     Active Substance: DENOSUMAB
     Dosage: UNK

REACTIONS (15)
  - Epistaxis [Recovered/Resolved]
  - Sepsis [Unknown]
  - Rash [Recovered/Resolved]
  - Lymphoedema [Recovered/Resolved]
  - Influenza like illness [Recovered/Resolved]
  - Diarrhoea [Recovered/Resolved]
  - Device related infection [Recovered/Resolved]
  - Alopecia [Recovered/Resolved]
  - Mucosal inflammation [Recovered/Resolved]
  - Gingival swelling [Recovered/Resolved]
  - Hot flush [Recovered/Resolved]
  - Gastrooesophageal reflux disease [Recovered/Resolved]
  - Ejection fraction decreased [Recovered/Resolved]
  - Fatigue [Recovered/Resolved]
  - Anaemia [Recovered/Resolved]

NARRATIVE: CASE EVENT DATE: 201508
